FAERS Safety Report 7064752-7 (Version None)
Quarter: 2010Q4

REPORT INFORMATION
  Report Type: 
  Country: None (occurrence: None)
  Receive Date: 20101027
  Receipt Date: 19830307
  Transmission Date: 20110411
  Serious: Yes (Death, Disabling)
  Sender: FDA-Public Use
  Company Number: GB-ROCHE-830402067001

PATIENT
  Age: 51 Year
  Sex: Female

DRUGS (3)
  1. ALLOPURINOL [Interacting]
     Route: 065
  2. FLUOROURACIL ^ROCHE^ [Suspect]
     Route: 042
  3. FLUOROURACIL ^ROCHE^ [Interacting]
     Route: 042

REACTIONS (5)
  - MALIGNANT NEOPLASM PROGRESSION [None]
  - NASAL SEPTUM DISORDER [None]
  - ORAL MUCOSAL ERUPTION [None]
  - PANCYTOPENIA [None]
  - STOMATITIS [None]
